FAERS Safety Report 15130220 (Version 2)
Quarter: 2018Q3

REPORT INFORMATION
  Report Type: Report from Study
  Country: PH (occurrence: PH)
  Receive Date: 20180711
  Receipt Date: 20180727
  Transmission Date: 20181010
  Serious: Yes (Hospitalization)
  Sender: FDA-Public Use
  Company Number: PHHY2018PH039737

PATIENT
  Age: 58 Year
  Sex: Female

DRUGS (1)
  1. TASIGNA [Suspect]
     Active Substance: NILOTINIB
     Indication: CHRONIC MYELOID LEUKAEMIA
     Dosage: 800 MG, UNK
     Route: 048
     Dates: start: 20130624, end: 20171202

REACTIONS (3)
  - Pulmonary oedema [Unknown]
  - Peripheral arterial occlusive disease [Unknown]
  - Pleural effusion [Unknown]

NARRATIVE: CASE EVENT DATE: 20180619
